FAERS Safety Report 5347607-5 (Version None)
Quarter: 2007Q2

REPORT INFORMATION
  Report Type: 
  Country: None (occurrence: None)
  Receive Date: 20070604
  Receipt Date: 20070604
  Transmission Date: 20071010
  Serious: Yes (Other)
  Sender: FDA-Public Use
  Company Number: None

PATIENT
  Age: 57 Year
  Sex: Female
  Weight: 79.3795 kg

DRUGS (1)
  1. SENSITIVE TEETH TOOTHPASTE [Suspect]
     Indication: DENTAL DISORDER PROPHYLAXIS
     Dosage: TOOTHBRUSH FULL 2 OR 3 TIMES/DAY DENTAL
     Route: 004
     Dates: start: 20060110, end: 20060315

REACTIONS (11)
  - DYSPHAGIA [None]
  - LIP HAEMORRHAGE [None]
  - LIP SWELLING [None]
  - MOUTH HAEMORRHAGE [None]
  - OEDEMA MOUTH [None]
  - OEDEMA MUCOSAL [None]
  - ORAL INFECTION [None]
  - ORAL INTAKE REDUCED [None]
  - PAIN [None]
  - SWOLLEN TONGUE [None]
  - VIRAL INFECTION [None]
